FAERS Safety Report 5151205-6 (Version None)
Quarter: 2006Q4

REPORT INFORMATION
  Report Type: 
  Country: None (occurrence: None)
  Receive Date: 20061114
  Receipt Date: 20061114
  Transmission Date: 20070319
  Serious: Yes (Hospitalization)
  Sender: FDA-Public Use
  Company Number: None

PATIENT
  Age: 46 Year
  Sex: Male
  Weight: 123.5 kg

DRUGS (9)
  1. ZOSYN [Suspect]
     Indication: DRUG THERAPY
     Dosage: 3.375 G   Q6H   IV
     Route: 042
     Dates: start: 20061029, end: 20061112
  2. ALBUTEROL SULFATE AND IPRATROPIUM BROMIDE [Concomitant]
  3. ENOXAPARIN SODIUM [Concomitant]
  4. LINEZOLID [Concomitant]
  5. PROTONIX [Concomitant]
  6. LORAZEPAM [Concomitant]
  7. ACETAMINOPHEN [Concomitant]
  8. DIAZEPAM [Concomitant]
  9. PROMETHAZINE [Concomitant]

REACTIONS (2)
  - OVERDOSE [None]
  - PYREXIA [None]
